FAERS Safety Report 6061376-5 (Version None)
Quarter: 2009Q1

REPORT INFORMATION
  Report Type: 
  Country: None (occurrence: None)
  Receive Date: 20090129
  Receipt Date: 20090129
  Transmission Date: 20090719
  Serious: Yes (Other)
  Sender: FDA-Public Use
  Company Number: None

PATIENT
  Age: 23 Year
  Sex: Male

DRUGS (3)
  1. OTRIVIN [Suspect]
     Dosage: 1-3 TIMES DAILY
  2. DEXA-RHINASPRAY DUO(DEXAMETHASONE ISONICOTINATE TRAMAZOLINE HYDROCHLOR [Concomitant]
  3. . [Concomitant]

REACTIONS (3)
  - DIZZINESS [None]
  - HYPERTENSION [None]
  - TACHYCARDIA [None]
